FAERS Safety Report 9436230 (Version 2)
Quarter: 2013Q3

REPORT INFORMATION
  Report Type: Spontaneous
  Country: US (occurrence: US)
  Receive Date: 20130801
  Receipt Date: 20130806
  Transmission Date: 20140515
  Serious: Yes (Other)
  Sender: FDA-Public Use
  Company Number: US-JNJFOC-20130713371

PATIENT
  Age: 77 Year
  Sex: Male
  Weight: 83.92 kg

DRUGS (3)
  1. NEOSPORIN PLUS PAIN RELIEF MAXIMUM STRENGTH FIRST AID ANTIBIOTIC PAIN RELIEVING [Suspect]
     Indication: PROMOTION OF WOUND HEALING
     Dosage: PENCIL ERASER SIZED AMOUNT
     Route: 061
     Dates: start: 20130715, end: 20130716
  2. ATENOLOL [Concomitant]
     Indication: CARDIAC DISORDER
     Route: 065
     Dates: start: 2008
  3. ENALAPRIL [Concomitant]
     Indication: BLOOD PRESSURE
     Route: 065
     Dates: start: 2008

REACTIONS (2)
  - Skin infection [Not Recovered/Not Resolved]
  - Drug ineffective [Unknown]
